FAERS Safety Report 10674186 (Version 1)
Quarter: 2014Q4

REPORT INFORMATION
  Report Type: Spontaneous
  Country: FR (occurrence: FR)
  Receive Date: 20141224
  Receipt Date: 20141224
  Transmission Date: 20150529
  Serious: Yes (Hospitalization)
  Sender: FDA-Public Use
  Company Number: FR-PFIZER INC-2014353857

PATIENT
  Age: 79 Year
  Sex: Male

DRUGS (16)
  1. JANUVIA [Concomitant]
     Active Substance: SITAGLIPTIN PHOSPHATE
     Dosage: 1 DF, 1X/DAY
     Route: 048
     Dates: start: 20121115, end: 20140924
  2. BEDELIX [Concomitant]
     Dosage: 1 DF, 3X/DAY
     Route: 048
     Dates: start: 20140904, end: 20140924
  3. STILNOX [Concomitant]
     Active Substance: ZOLPIDEM TARTRATE
     Dosage: 1 DF, 1X/DAY
     Route: 048
     Dates: start: 20140924
  4. ALDACTONE [Suspect]
     Active Substance: SPIRONOLACTONE
     Dosage: 50 MG, 1X/DAY
     Route: 048
     Dates: start: 20140904, end: 20140918
  5. ELISOR [Concomitant]
     Active Substance: PRAVASTATIN SODIUM
     Dosage: 20 MG, 1X/DAY
     Route: 048
     Dates: start: 20140904
  6. IXPRIM [Concomitant]
     Active Substance: ACETAMINOPHEN\TRAMADOL HYDROCHLORIDE
     Dosage: 1 TO 4 TABLETS DAILY
     Route: 048
     Dates: start: 20140904, end: 20140924
  7. LEXOMIL [Concomitant]
     Active Substance: BROMAZEPAM
     Dosage: 1 DF, 1X/DAY
     Route: 048
     Dates: start: 20140904
  8. TRIATEC [Suspect]
     Active Substance: RAMIPRIL
     Dosage: 10 MG, 1X/DAY
     Route: 048
     Dates: start: 20140904
  9. DUSPATALIN [Concomitant]
     Active Substance: MEBEVERINE HYDROCHLORIDE
     Dosage: 400 MG, DAILY
     Route: 048
     Dates: start: 20140904, end: 20140924
  10. ISOPTIN - SLOW RELEASE [Concomitant]
     Dosage: 240 MG, 2X/DAY
     Route: 048
     Dates: start: 20140904
  11. DIAMICRON [Concomitant]
     Active Substance: GLICLAZIDE
     Dosage: 120 MG, 1X/DAY
     Route: 048
     Dates: start: 20140904, end: 20140924
  12. DOLIPRANE [Concomitant]
     Active Substance: ACETAMINOPHEN
     Dosage: 1 TO 4 G DAILY
     Route: 048
     Dates: start: 20140904
  13. FORLAX [Concomitant]
     Active Substance: POLYETHYLENE GLYCOL 4000
     Dosage: UNK
     Route: 048
     Dates: start: 20140904
  14. LASILIX [Suspect]
     Active Substance: FUROSEMIDE
     Dosage: 20 MG, 1X/DAY
     Route: 048
     Dates: start: 20140904
  15. PREVISCAN [Concomitant]
     Active Substance: FLUINDIONE
     Dosage: 1 DF, 1X/DAY
     Route: 048
     Dates: start: 20140904
  16. DEROXAT [Concomitant]
     Active Substance: PAROXETINE HYDROCHLORIDE
     Dosage: UNK
     Dates: start: 20140904, end: 201409

REACTIONS (3)
  - Constipation [Recovered/Resolved]
  - Hyponatraemia [Recovered/Resolved]
  - Hyperkalaemia [Recovered/Resolved]

NARRATIVE: CASE EVENT DATE: 20140917
